FAERS Safety Report 7145553-8 (Version None)
Quarter: 2010Q4

REPORT INFORMATION
  Report Type: 
  Country: None (occurrence: None)
  Receive Date: 20101123
  Receipt Date: 20101111
  Transmission Date: 20110411
  Serious: Yes (Death, Life-Threatening, Hospitalization, Disabling, Other)
  Sender: FDA-Public Use
  Company Number: 2010SP059881

PATIENT
  Age: 80 Year
  Sex: Male
  Weight: 75 kg

DRUGS (8)
  1. INTEGRILIN [Suspect]
     Indication: ARTERIAL OCCLUSIVE DISEASE
     Dosage: SEE CONT PAGE
     Dates: start: 20101022, end: 20101026
  2. INTEGRILIN [Suspect]
     Indication: ARTERIAL OCCLUSIVE DISEASE
     Dosage: SEE CONT PAGE
     Dates: start: 20101103
  3. PLAVIX [Suspect]
     Indication: PRODUCT USED FOR UNKNOWN INDICATION
     Dosage: 300 MG
     Dates: start: 20101022
  4. ANGIOMAX [Suspect]
     Indication: PRODUCT USED FOR UNKNOWN INDICATION
     Dates: start: 20101022
  5. LOVENOX [Suspect]
     Indication: PRODUCT USED FOR UNKNOWN INDICATION
  6. NITROGLYCERIN [Suspect]
     Indication: PRODUCT USED FOR UNKNOWN INDICATION
     Dates: start: 20101022
  7. DARVOCET [Suspect]
     Indication: PRODUCT USED FOR UNKNOWN INDICATION
     Dates: start: 20101103
  8. UNTROPIN [Suspect]
     Indication: PRODUCT USED FOR UNKNOWN INDICATION
     Dates: start: 20101103

REACTIONS (5)
  - HAEMORRHAGE INTRACRANIAL [None]
  - HYPERSENSITIVITY [None]
  - HYPOTENSION [None]
  - MYOCARDIAL INFARCTION [None]
  - PLATELET COUNT DECREASED [None]
